FAERS Safety Report 5211244-3 (Version None)
Quarter: 2006Q4

REPORT INFORMATION
  Report Type: 
  Country: None (occurrence: None)
  Receive Date: 20061114
  Receipt Date: 20060831
  Transmission Date: 20070319
  Serious: No
  Sender: FDA-Public Use
  Company Number: S06-USA-03527-01

PATIENT
  Age: 66 Year
  Sex: Male

DRUGS (13)
  1. NAMENDA [Suspect]
     Indication: DEMENTIA
     Dosage: 10 MG BID; PO
     Route: 048
     Dates: start: 20060101, end: 20060101
  2. NAMENDA [Suspect]
     Indication: DEMENTIA
     Dosage: 5 MG BID; PO
     Route: 048
     Dates: start: 20060101
  3. NAMENDA [Suspect]
     Indication: DEMENTIA
     Dosage: 5 MG, BID; PO
     Route: 048
     Dates: start: 20060701, end: 20060101
  4. NAMENDA [Suspect]
     Indication: DEMENTIA
     Dosage: 15 MG QD; PO
     Route: 048
     Dates: start: 20060101, end: 20060101
  5. NAMENDA [Suspect]
     Indication: DEMENTIA
     Dosage: 5 MG, QD; PO
     Route: 048
     Dates: start: 20060701, end: 20060701
  6. LEXAPRO [Suspect]
     Indication: DEPRESSION
     Dosage: 20 MG QD; PO
     Route: 048
     Dates: start: 20030101
  7. TRAZODONE HCL [Concomitant]
  8. ALPRAZOLAM [Concomitant]
  9. PRILOSEC [Concomitant]
  10. SINGULAIR [Concomitant]
  11. FUROSEMIDE [Concomitant]
  12. POTASSIUM ACETATE [Concomitant]
  13. ALBUTEROL [Concomitant]

REACTIONS (5)
  - DISTURBANCE IN ATTENTION [None]
  - DIZZINESS [None]
  - NAIL DISCOLOURATION [None]
  - NAIL DISORDER [None]
  - NAIL GROWTH ABNORMAL [None]
